FAERS Safety Report 6687573-3 (Version None)
Quarter: 2010Q2

REPORT INFORMATION
  Report Type: 
  Country: None (occurrence: None)
  Receive Date: 20100416
  Receipt Date: 20100416
  Transmission Date: 20101027
  Serious: Yes (Death, Hospitalization)
  Sender: FDA-Public Use
  Company Number: None

PATIENT
  Sex: Male
  Weight: 16.8 kg

DRUGS (6)
  1. CYTARABINE [Suspect]
     Dosage: 70 MG
     Dates: end: 20100209
  2. DAUNORUBICIN HCL [Suspect]
     Dosage: 52.3 MG
     Dates: end: 20100224
  3. METHOTREXATE [Suspect]
     Dosage: 12 MG
     Dates: end: 20100217
  4. PEG-L ASPARAGINASE (K-H) [Suspect]
     Dosage: 1720 MG
     Dates: end: 20100213
  5. PREDNISONE [Suspect]
     Dosage: 990 MG
     Dates: end: 20100311
  6. VINCRISTINE SULFATE [Suspect]
     Dosage: 4.3 MG
     Dates: end: 20100304

REACTIONS (11)
  - BACILLUS INFECTION [None]
  - BACTERIAL INFECTION [None]
  - BACTERIAL TEST POSITIVE [None]
  - DEVICE RELATED INFECTION [None]
  - ENTEROCOCCAL INFECTION [None]
  - IMMUNOSUPPRESSION [None]
  - RESPIRATORY FAILURE [None]
  - RESPIRATORY SYNCYTIAL VIRUS INFECTION [None]
  - RESPIRATORY TRACT INFECTION BACTERIAL [None]
  - SEPSIS [None]
  - STENOTROPHOMONAS INFECTION [None]
